FAERS Safety Report 4754533-9 (Version None)
Quarter: 2005Q3

REPORT INFORMATION
  Report Type: 
  Country: None (occurrence: None)
  Receive Date: 20050829
  Receipt Date: 20041108
  Transmission Date: 20060218
  Serious: No
  Sender: FDA-Public Use
  Company Number: 19542

PATIENT
  Age: 47 Year
  Sex: Female

DRUGS (4)
  1. ZOVIRAX [Suspect]
     Dosage: 1APP TWICE PER DAY
     Route: 061
     Dates: start: 20041007
  2. ZESTORETIC [Concomitant]
  3. NORVASC [Concomitant]
  4. CELEBREX [Concomitant]

REACTIONS (1)
  - IMPAIRED HEALING [None]
